FAERS Safety Report 10231303 (Version 1)
Quarter: 2014Q2

REPORT INFORMATION
  Report Type: Spontaneous
  Country: GB (occurrence: GB)
  Receive Date: 20140611
  Receipt Date: 20140611
  Transmission Date: 20141212
  Serious: Yes (Life-Threatening)
  Sender: FDA-Public Use
  Company Number: GB-GLAXOSMITHKLINE-B1000197A

PATIENT
  Age: 62 Year
  Sex: Male
  Weight: 70 kg

DRUGS (4)
  1. PAZOPANIB [Suspect]
     Indication: RENAL CANCER
     Dosage: 2IUAX PER DAY
     Route: 048
     Dates: end: 20140519
  2. ORAMORPH [Concomitant]
  3. RAMIPRIL [Concomitant]
  4. TRAMADOL [Concomitant]

REACTIONS (1)
  - Atrioventricular block complete [Recovered/Resolved]
